FAERS Safety Report 10331138 (Version 1)
Quarter: 2014Q3

REPORT INFORMATION
  Report Type: Spontaneous
  Country: BE (occurrence: BE)
  Receive Date: 20140722
  Receipt Date: 20140722
  Transmission Date: 20150326
  Serious: Yes (Other)
  Sender: FDA-Public Use
  Company Number: BE-ASTRAZENECA-2014SE51844

PATIENT
  Age: 22385 Day
  Sex: Male

DRUGS (9)
  1. ASAFLOW [Concomitant]
     Active Substance: ASPIRIN
  2. GLUR?NORM [Concomitant]
  3. ZESTRIL [Concomitant]
     Active Substance: LISINOPRIL
  4. JANUVIA [Concomitant]
     Active Substance: SITAGLIPTIN PHOSPHATE
  5. ZOCOR [Concomitant]
     Active Substance: SIMVASTATIN
  6. BRILIQUE [Suspect]
     Active Substance: TICAGRELOR
     Indication: ACUTE MYOCARDIAL INFARCTION
     Route: 048
     Dates: start: 20140412, end: 20140416
  7. EMCONCOR [Concomitant]
     Active Substance: BISOPROLOL FUMARATE
  8. METFORMINE [Concomitant]
     Active Substance: METFORMIN HYDROCHLORIDE
  9. THYROXINE [Concomitant]
     Active Substance: LEVOTHYROXINE

REACTIONS (2)
  - Drug dose omission [Unknown]
  - Thrombosis in device [Unknown]

NARRATIVE: CASE EVENT DATE: 20140416
